FAERS Safety Report 11272890 (Version 2)
Quarter: 2015Q4

REPORT INFORMATION
  Report Type: Spontaneous
  Country: US (occurrence: US)
  Receive Date: 20150715
  Receipt Date: 20151012
  Transmission Date: 20160304
  Serious: No
  Sender: FDA-Public Use
  Company Number: US-PFIZER INC-2015229905

PATIENT
  Age: 59 Year
  Sex: Male
  Weight: 92 kg

DRUGS (16)
  1. PROGRAF [Concomitant]
     Active Substance: TACROLIMUS\TACROLIMUS ANHYDROUS
     Indication: LUNG TRANSPLANT
     Dosage: UNK, 2X/DAY (HIGHER DOSE WAS 9 MG AND LOW DOSE WAS 1 MG, TWICE A DAY)
  2. HUMULIN N [Concomitant]
     Active Substance: INSULIN HUMAN
     Dosage: 4 IU, DAILY (AT NIGHT)
  3. MYCOPHENOLATE [Concomitant]
     Active Substance: MYCOPHENOLIC ACID
     Indication: LUNG TRANSPLANT
     Dosage: 1000 MG, 2X/DAY (500 MG, TWO TABLETS TWO TIMES A DAY)
     Route: 048
  4. VFEND [Suspect]
     Active Substance: VORICONAZOLE
     Indication: PULMONARY MYCOSIS
     Dosage: 200 MG, 2X/DAY
     Dates: start: 201408
  5. OMEPRAZOLE. [Concomitant]
     Active Substance: OMEPRAZOLE
     Dosage: 6 MG, 1X/DAY
  6. PRAVASTATIN [Concomitant]
     Active Substance: PRAVASTATIN\PRAVASTATIN SODIUM
     Dosage: 10 MG, 1X/DAY
  7. VALCYTE [Concomitant]
     Active Substance: VALGANCICLOVIR HYDROCHLORIDE
     Dosage: 450 MG, DAILY
     Route: 048
     Dates: end: 201506
  8. MAGNESIUM [Concomitant]
     Active Substance: MAGNESIUM
     Dosage: 800 MG, 2X/DAY (400 MG, 2 PILLS TWICE A DAY)
     Route: 048
  9. LYRICA [Concomitant]
     Active Substance: PREGABALIN
     Indication: NEUROPATHY PERIPHERAL
     Dosage: 75 MG, 3X/DAY
  10. ASPIRIN. [Concomitant]
     Active Substance: ASPIRIN
     Dosage: 81 MG, 1X/DAY
  11. VFEND [Suspect]
     Active Substance: VORICONAZOLE
     Dosage: 200 MG, 2X/DAY
     Dates: start: 201506
  12. PREDNISONE. [Concomitant]
     Active Substance: PREDNISONE
     Indication: LUNG TRANSPLANT
     Dosage: 5 MG, 2X/DAY
  13. CALCIUM [Concomitant]
     Active Substance: CALCIUM
     Dosage: 600 MG, 2X/DAY (600 MG, ONE PILL TWICE A DAY)
     Route: 048
  14. PRESERVISION [Concomitant]
     Active Substance: MINERALS\VITAMINS
     Dosage: 1 DF, 2X/DAY
  15. SULFAMETHOXAZOLE [Concomitant]
     Active Substance: SULFAMETHOXAZOLE
     Dosage: 400 MG-80 MG, THREE TIMES A WEEK
  16. HUMULIN R [Concomitant]
     Active Substance: INSULIN HUMAN
     Dosage: UNK, 3X/DAY (BEFORE EACH MEAL)
     Dates: end: 201506

REACTIONS (3)
  - Visual brightness [Unknown]
  - Xanthopsia [Unknown]
  - Flushing [Unknown]
